FAERS Safety Report 19635381 (Version 1)
Quarter: 2021Q3

REPORT INFORMATION
  Report Type: Spontaneous
  Country: PT (occurrence: PT)
  Receive Date: 20210729
  Receipt Date: 20210729
  Transmission Date: 20211014
  Serious: Yes (Other)
  Sender: FDA-Public Use
  Company Number: PT-TAKEDA-2021TUS047165

PATIENT
  Age: 56 Year
  Sex: Male
  Weight: 71 kg

DRUGS (5)
  1. SUNITINIB [Concomitant]
     Active Substance: SUNITINIB
     Dosage: UNK
     Route: 048
  2. OLMESARTAN MEDOXOMIL E AMLODIPINA [Concomitant]
     Dosage: UNK
     Route: 048
  3. FEBUXOSTAT. [Suspect]
     Active Substance: FEBUXOSTAT
     Indication: HYPERURICAEMIA
     Dosage: 80 MILLIGRAM, QD
     Route: 048
     Dates: start: 20210706, end: 20210709
  4. ALPRAZOLAM. [Concomitant]
     Active Substance: ALPRAZOLAM
     Dosage: UNK
     Route: 048
  5. ATORVASTATIN [Concomitant]
     Active Substance: ATORVASTATIN
     Dosage: UNK
     Route: 048

REACTIONS (3)
  - Syncope [Recovering/Resolving]
  - Xanthopsia [Recovering/Resolving]
  - Pyrexia [Recovering/Resolving]

NARRATIVE: CASE EVENT DATE: 20210707
